FAERS Safety Report 4759735-3 (Version None)
Quarter: 2005Q3

REPORT INFORMATION
  Report Type: 
  Country: None (occurrence: None)
  Receive Date: 20050826
  Receipt Date: 20050617
  Transmission Date: 20060218
  Serious: No
  Sender: FDA-Public Use
  Company Number: 215431

PATIENT
  Sex: Male

DRUGS (5)
  1. RAPTIVA [Suspect]
     Indication: PSORIASIS
     Dosage: 1 MG/M2,
  2. SORIATANE [Concomitant]
  3. PUVA (PHOTOTHERAPY, PSORALEN) [Concomitant]
  4. ENBREL [Concomitant]
  5. AMEVIVE [Concomitant]

REACTIONS (1)
  - NEUTROPHIL COUNT DECREASED [None]
